FAERS Safety Report 23219753 (Version 3)
Quarter: 2024Q2

REPORT INFORMATION
  Report Type: Spontaneous
  Country: US (occurrence: US)
  Receive Date: 20231122
  Receipt Date: 20240528
  Transmission Date: 20240716
  Serious: No
  Sender: FDA-Public Use
  Company Number: US-AVADEL CNS PHARMACEUTICALS, LLC-2023AVA00086

PATIENT
  Age: 24 Year
  Sex: Female
  Weight: 48.481 kg

DRUGS (26)
  1. LUMRYZ [Suspect]
     Active Substance: SODIUM OXYBATE
     Indication: Narcolepsy
     Dosage: 7.5 G, ONCE NIGHTLY
     Route: 048
     Dates: start: 202308, end: 202308
  2. LUMRYZ [Suspect]
     Active Substance: SODIUM OXYBATE
     Indication: Cataplexy
  3. LUMRYZ [Suspect]
     Active Substance: SODIUM OXYBATE
     Indication: Somnolence
  4. LUMRYZ [Suspect]
     Active Substance: SODIUM OXYBATE
     Indication: Narcolepsy
     Dosage: 9 G, ONCE NIGHTLY AT BEDTIME
     Route: 048
     Dates: start: 202308
  5. LUMRYZ [Suspect]
     Active Substance: SODIUM OXYBATE
     Indication: Cataplexy
     Dosage: 9 G, ONCE NIGHTLY AT BEDTIME
     Route: 048
  6. LUMRYZ [Suspect]
     Active Substance: SODIUM OXYBATE
     Indication: Somnolence
  7. ALLEGRA-D 24 HOUR [Concomitant]
     Active Substance: FEXOFENADINE HYDROCHLORIDE\PSEUDOEPHEDRINE HYDROCHLORIDE
  8. TOVIAZ [Concomitant]
     Active Substance: FESOTERODINE FUMARATE
     Dosage: UNK
  9. BUSPIRONE HCL [Concomitant]
     Active Substance: BUSPIRONE HYDROCHLORIDE
     Dosage: UNK
  10. ATOMOXETINE HYDROCHLORIDE [Concomitant]
     Active Substance: ATOMOXETINE HYDROCHLORIDE
     Dosage: UNK
  11. DEXILANT [Concomitant]
     Active Substance: DEXLANSOPRAZOLE
     Dosage: UNK
  12. VITAMIN B12 [Concomitant]
     Active Substance: CYANOCOBALAMIN
     Dosage: 1000 ?G
  13. YAZ [Concomitant]
     Active Substance: DROSPIRENONE\ETHINYL ESTRADIOL
     Dosage: UNK
  14. VILAZODONE HYDROCHLORIDE [Concomitant]
     Active Substance: VILAZODONE HYDROCHLORIDE
     Dosage: UNK
  15. GEMTESA [Concomitant]
     Active Substance: VIBEGRON
     Dosage: UNK
  16. MONTELUKAST SODIUM [Concomitant]
     Active Substance: MONTELUKAST SODIUM
     Dosage: UNK
  17. LEVALBUTEROL [Concomitant]
     Active Substance: LEVALBUTEROL
  18. KETOCONAZOLE [Concomitant]
     Active Substance: KETOCONAZOLE
     Dosage: UNK
  19. CORLANOR [Concomitant]
     Active Substance: IVABRADINE HYDROCHLORIDE
     Dosage: UNK
  20. CLONAZEPAM [Concomitant]
     Active Substance: CLONAZEPAM
     Dosage: UNK
  21. QVAR REDIHALER [Concomitant]
     Active Substance: BECLOMETHASONE DIPROPIONATE
  22. ACETAMINOPHEN\HYDROCODONE [Concomitant]
     Active Substance: ACETAMINOPHEN\HYDROCODONE
     Dosage: UNK
  23. KETAMINE HYDROCHLORIDE [Concomitant]
     Active Substance: KETAMINE HYDROCHLORIDE
     Dosage: UNK
  24. VITAMIN B1 [Concomitant]
     Active Substance: THIAMINE HYDROCHLORIDE
  25. BACLOFEN [Concomitant]
     Active Substance: BACLOFEN
  26. WAKIX [Concomitant]
     Active Substance: PITOLISANT HYDROCHLORIDE

REACTIONS (7)
  - Performance status decreased [Not Recovered/Not Resolved]
  - Nasal septum deviation [Recovering/Resolving]
  - Skin lesion [Unknown]
  - Therapeutic response unexpected [Not Recovered/Not Resolved]
  - Vomiting [Not Recovered/Not Resolved]
  - Drug ineffective [Recovered/Resolved]
  - Drug dose titration not performed [Unknown]

NARRATIVE: CASE EVENT DATE: 20230801
